FAERS Safety Report 24335117 (Version 2)
Quarter: 2024Q3

REPORT INFORMATION
  Report Type: Spontaneous
  Country: US (occurrence: US)
  Receive Date: 20240918
  Receipt Date: 20240925
  Transmission Date: 20241017
  Serious: No
  Sender: Unknown Manufacturer
  Company Number: US-MTPC-MTDA2024-0019555

PATIENT
  Sex: Female

DRUGS (4)
  1. RADICAVA ORS [Suspect]
     Active Substance: EDARAVONE
     Indication: Amyotrophic lateral sclerosis
     Dosage: 5 MILLILITER, QD 10 OUT OF 14 DAYS THEN 14 DAYS OFF
     Route: 048
     Dates: start: 202405
  2. RADICAVA ORS [Suspect]
     Active Substance: EDARAVONE
     Indication: Amyotrophic lateral sclerosis
     Dosage: 5 MILLILITER, QD 10 OUT OF 14 DAYS THEN 14 DAYS OFF
     Route: 048
     Dates: start: 202405
  3. RADICAVA ORS [Suspect]
     Active Substance: EDARAVONE
     Dosage: MAINTENANCE DOSE
     Route: 048
     Dates: start: 202406
  4. RADICAVA ORS [Suspect]
     Active Substance: EDARAVONE
     Dosage: MAINTENANCE DOSE
     Route: 048
     Dates: start: 202406

REACTIONS (4)
  - Balance disorder [Recovered/Resolved]
  - Depressed mood [Unknown]
  - Fatigue [Unknown]
  - Asthenia [Recovered/Resolved]
